FAERS Safety Report 9345287 (Version 3)
Quarter: 2013Q4

REPORT INFORMATION
  Report Type: Spontaneous
  Country: US (occurrence: US)
  Receive Date: 20130613
  Receipt Date: 20131209
  Transmission Date: 20140711
  Serious: Yes (Hospitalization)
  Sender: FDA-Public Use
  Company Number: US-B.I. PHARMACEUTICALS,INC./RIDGEFIELD-2013-BI-16107BP

PATIENT
  Sex: Female

DRUGS (6)
  1. PRADAXA [Suspect]
     Indication: ATRIAL FIBRILLATION
     Dosage: 300 MG
     Dates: start: 20110824, end: 20120228
  2. ACTOS [Concomitant]
     Dosage: 30 MG
  3. ASPIRIN [Concomitant]
     Dosage: 81 MG
  4. CARDIZEM CD [Concomitant]
  5. LASIX [Concomitant]
  6. LOPRESSOR [Concomitant]

REACTIONS (5)
  - Upper gastrointestinal haemorrhage [Unknown]
  - Anaemia [Unknown]
  - Hypotension [Unknown]
  - Coagulopathy [Unknown]
  - Rectal haemorrhage [Unknown]
